FAERS Safety Report 10875291 (Version 1)
Quarter: 2015Q1

REPORT INFORMATION
  Report Type: Spontaneous
  Country: JP (occurrence: JP)
  Receive Date: 20150227
  Receipt Date: 20150227
  Transmission Date: 20150721
  Serious: Yes (Other)
  Sender: FDA-Public Use
  Company Number: JP-ASTRAZENECA-2015SE17899

PATIENT
  Age: 51 Year
  Sex: Male

DRUGS (4)
  1. URIEF [Concomitant]
     Active Substance: SILODOSIN
     Route: 048
  2. GRACEVIT [Suspect]
     Active Substance: SITAFLOXACIN
     Indication: PYELONEPHRITIS
     Route: 048
     Dates: start: 20141206, end: 20141208
  3. AVOLVE [Concomitant]
     Active Substance: DUTASTERIDE
     Route: 048
  4. MEROPEN [Suspect]
     Active Substance: MEROPENEM
     Indication: PYELONEPHRITIS
     Route: 042
     Dates: start: 20141202, end: 20141206

REACTIONS (2)
  - Thrombocytopenia [Recovered/Resolved]
  - Liver disorder [Recovered/Resolved]

NARRATIVE: CASE EVENT DATE: 20141206
